FAERS Safety Report 13575698 (Version 1)
Quarter: 2017Q2

REPORT INFORMATION
  Report Type: Spontaneous
  Country: US (occurrence: US)
  Receive Date: 20170523
  Receipt Date: 20170523
  Transmission Date: 20170830
  Serious: Yes (Disabling)
  Sender: FDA-Public Use
  Company Number: None

PATIENT
  Age: 57 Year
  Sex: Female
  Weight: 103.5 kg

DRUGS (18)
  1. GEMFIBROZIL. [Suspect]
     Active Substance: GEMFIBROZIL
     Indication: DIABETES MELLITUS
  2. AMLOBLPINE [Concomitant]
  3. LISINOPRIL. [Concomitant]
     Active Substance: LISINOPRIL
  4. OXYBUTYNIN [Concomitant]
     Active Substance: OXYBUTYNIN
  5. ACYCLOVIR. [Concomitant]
     Active Substance: ACYCLOVIR
  6. ATENOLOL. [Concomitant]
     Active Substance: ATENOLOL
  7. FERROUS SULF [Concomitant]
  8. BABY ASPIRIN [Concomitant]
     Active Substance: ASPIRIN
  9. CETIRIZINE [Concomitant]
     Active Substance: CETIRIZINE HYDROCHLORIDE
  10. ALLOPURINOL. [Concomitant]
     Active Substance: ALLOPURINOL
  11. ONGLYZA [Concomitant]
     Active Substance: SAXAGLIPTIN HYDROCHLORIDE
  12. TRAMADOL. [Concomitant]
     Active Substance: TRAMADOL
  13. KRILL OIL [Concomitant]
     Active Substance: DIETARY SUPPLEMENT
  14. VITAMIN B12 [Concomitant]
     Active Substance: CYANOCOBALAMIN
  15. LYRCIA [Concomitant]
  16. OMEPRAZOLE. [Concomitant]
     Active Substance: OMEPRAZOLE
  17. DULOXETINE. [Concomitant]
     Active Substance: DULOXETINE
  18. VITAMIN D3 [Concomitant]
     Active Substance: CHOLECALCIFEROL

REACTIONS (8)
  - Sleep disorder [None]
  - Movement disorder [None]
  - Muscle spasms [None]
  - Impaired work ability [None]
  - Renal failure [None]
  - Loss of personal independence in daily activities [None]
  - Walking aid user [None]
  - Crying [None]

NARRATIVE: CASE EVENT DATE: 20170412
